FAERS Safety Report 15461387 (Version 1)
Quarter: 2018Q4

REPORT INFORMATION
  Report Type: Report from Study
  Country: US (occurrence: US)
  Receive Date: 20181003
  Receipt Date: 20181003
  Transmission Date: 20190204
  Serious: Yes (Hospitalization)
  Sender: FDA-Public Use
  Company Number: US-TAKEDA-2018TUS026125

PATIENT
  Sex: Female

DRUGS (1)
  1. PONATINIB [Suspect]
     Active Substance: PONATINIB
     Indication: CHRONIC MYELOID LEUKAEMIA
     Dosage: 45 MG, QD
     Route: 048
     Dates: start: 20180822, end: 20180927

REACTIONS (6)
  - Urinary tract infection [Unknown]
  - Pyrexia [Unknown]
  - Urine output decreased [Unknown]
  - Back pain [Unknown]
  - Musculoskeletal chest pain [Unknown]
  - Pain [Unknown]
